FAERS Safety Report 4845504-2 (Version None)
Quarter: 2005Q4

REPORT INFORMATION
  Report Type: 
  Country: None (occurrence: None)
  Receive Date: 20051201
  Receipt Date: 20051111
  Transmission Date: 20060501
  Serious: Yes (Other)
  Sender: FDA-Public Use
  Company Number: US_0506118784

PATIENT
  Age: 38 Year
  Sex: Female
  Weight: 85.9 kg

DRUGS (10)
  1. ZYPREXA [Suspect]
     Dosage: SEE I MAGE
     Route: 048
     Dates: start: 19990301
  2. CIPRO [Suspect]
  3. CARBAMAZEPINE [Concomitant]
  4. DIVALPROEX (VALPROATE SEMISODIUM) [Concomitant]
  5. LITHIUM CARBONATE [Concomitant]
  6. SERTRALINE HCL [Concomitant]
  7. GEODON [Concomitant]
  8. ABILIFY [Concomitant]
  9. NEURONTIN [Concomitant]
  10. LONOX (ATROPINE SULFATE, DIPHENOXYLATE HYDROCHLORIDE) [Concomitant]

REACTIONS (6)
  - BILIARY TRACT DISORDER [None]
  - DIABETES MELLITUS [None]
  - EPISTAXIS [None]
  - HAEMOPTYSIS [None]
  - HYPERGLYCAEMIC HYPEROSMOLAR NONKETOTIC SYNDROME [None]
  - URINARY TRACT INFECTION [None]
